FAERS Safety Report 14523762 (Version 1)
Quarter: 2018Q1

REPORT INFORMATION
  Report Type: Spontaneous
  Country: MN (occurrence: MN)
  Receive Date: 20180213
  Receipt Date: 20180213
  Transmission Date: 20180509
  Serious: Yes (Other)
  Sender: FDA-Public Use
  Company Number: MN-STRIDES ARCOLAB LIMITED-2018SP000920

PATIENT

DRUGS (4)
  1. CINACALCET. [Concomitant]
     Active Substance: CINACALCET
     Indication: HYPERPARATHYROIDISM
     Dosage: UNK
     Route: 065
  2. CALCITRIOL. [Suspect]
     Active Substance: CALCITRIOL
     Indication: HYPERPARATHYROIDISM
     Dosage: 1 ?G, DAILY
     Route: 065
  3. SEVELAMER [Suspect]
     Active Substance: SEVELAMER
     Indication: HYPERCALCAEMIA
     Dosage: 800 MG DAILY
     Route: 065
  4. CALCIUM ACETATE. [Suspect]
     Active Substance: CALCIUM ACETATE
     Indication: HYPERPARATHYROIDISM
     Dosage: 700 MG, BID
     Route: 048

REACTIONS (1)
  - Drug ineffective [Unknown]
